FAERS Safety Report 5404097-1 (Version None)
Quarter: 2007Q3

REPORT INFORMATION
  Report Type: 
  Country: None (occurrence: None)
  Receive Date: 20070731
  Receipt Date: 20070717
  Transmission Date: 20080115
  Serious: Yes (Disabling, Other)
  Sender: FDA-Public Use
  Company Number: GXKR2007IN06179

PATIENT
  Age: 40 Year
  Sex: Male

DRUGS (7)
  1. ZIDOVUDINE [Suspect]
     Indication: HIV INFECTION
     Dosage: 300 MG,
  2. EFAVIRENZ [Suspect]
     Indication: HIV INFECTION
     Dosage: 600 MG,
  3. LAMIVUDINE [Suspect]
     Dosage: 150 MG,
  4. RIFAMPICIN [Suspect]
     Dosage: 600 MG,
  5. ISONIAZID [Suspect]
     Indication: TUBERCULOSIS
     Dosage: 300 MG,
  6. PYRAZINAMIDE [Suspect]
     Dosage: 1200 MG,
  7. ETHAMBUTOL HYDROCHLORIDE [Suspect]
     Indication: TUBERCULOSIS
     Dosage: 800 MG,

REACTIONS (9)
  - BLINDNESS UNILATERAL [None]
  - CONDITION AGGRAVATED [None]
  - DISORDER OF GLOBE [None]
  - IRIDOCELE [None]
  - PAIN [None]
  - PULMONARY CONGESTION [None]
  - PULMONARY TUBERCULOSIS [None]
  - RETINAL EXUDATES [None]
  - UVEITIS [None]
